FAERS Safety Report 24839156 (Version 1)
Quarter: 2025Q1

REPORT INFORMATION
  Report Type: Spontaneous
  Country: US (occurrence: US)
  Receive Date: 20250114
  Receipt Date: 20250114
  Transmission Date: 20250409
  Serious: No
  Sender: IBSA INSTITUT BIOCHIMIQUE
  Company Number: US-IBSA PHARMA INC.-2024IBS000077

PATIENT

DRUGS (2)
  1. TIROSINT-SOL [Suspect]
     Active Substance: LEVOTHYROXINE SODIUM
     Indication: Product used for unknown indication
     Dosage: 1 MICROGRAM AMPULE, QD
     Route: 048
     Dates: start: 20240216
  2. TIROSINT [Suspect]
     Active Substance: LEVOTHYROXINE SODIUM
     Indication: Product used for unknown indication
     Dosage: 150 MICROGRAM, QD
     Route: 065

REACTIONS (7)
  - Asthenia [Unknown]
  - Constipation [Unknown]
  - Eye pruritus [Unknown]
  - Nasal pruritus [Unknown]
  - Sneezing [Unknown]
  - Product dose omission issue [Unknown]
  - Product quality issue [Unknown]
